FAERS Safety Report 8141558-9 (Version None)
Quarter: 2012Q1

REPORT INFORMATION
  Report Type: 
  Country: None (occurrence: None)
  Receive Date: 20120103
  Receipt Date: 20110829
  Transmission Date: 20120608
  Serious: No
  Sender: FDA-Public Use
  Company Number: AE-2011-001154

PATIENT
  Age: 61 Year
  Sex: Female
  Weight: 57.4707 kg

DRUGS (3)
  1. RIBAVIRIN [Concomitant]
  2. INCIVEK [Suspect]
     Dosage: 2250 MG (750 MG, 3 IN 1 D), ORAL
     Route: 048
     Dates: start: 20110806
  3. PEGASYS [Concomitant]

REACTIONS (2)
  - ANORECTAL DISCOMFORT [None]
  - ANAL PRURITUS [None]
